FAERS Safety Report 6219771-7 (Version None)
Quarter: 2009Q2

REPORT INFORMATION
  Report Type: 
  Country: None (occurrence: None)
  Receive Date: 20090609
  Receipt Date: 20090530
  Transmission Date: 20091009
  Serious: Yes (Death)
  Sender: FDA-Public Use
  Company Number: A0789200A

PATIENT
  Sex: Male
  Weight: 60 kg

DRUGS (2)
  1. SERETIDE [Suspect]
     Indication: ASTHMA
     Dosage: 2PUFF PER DAY
     Dates: start: 20090325
  2. UNKNOWN MEDICATION [Concomitant]
     Dosage: 1TAB PER DAY
     Dates: start: 20070101, end: 20090419

REACTIONS (3)
  - ASTHMA [None]
  - BRONCHITIS [None]
  - CHRONIC OBSTRUCTIVE PULMONARY DISEASE [None]
